FAERS Safety Report 8920594 (Version 1)
Quarter: 2012Q4

REPORT INFORMATION
  Report Type: 
  Country: US (occurrence: US)
  Receive Date: 20121121
  Receipt Date: 20121121
  Transmission Date: 20130627
  Serious: No
  Sender: FDA-Public Use
  Company Number: US-B.I. PHARMACEUTICALS,INC./RIDGEFIELD-2012-BI-00783BP

PATIENT
  Age: 43 Year
  Sex: Male

DRUGS (2)
  1. SPIRIVA [Suspect]
     Indication: ASTHMA
     Dosage: 18 mcg
     Route: 055
  2. SPIRIVA [Suspect]
     Route: 048
     Dates: start: 20121116, end: 20121116

REACTIONS (1)
  - Incorrect route of drug administration [Recovered/Resolved]
